FAERS Safety Report 17572858 (Version 2)
Quarter: 2020Q2

REPORT INFORMATION
  Report Type: Spontaneous
  Country: BR (occurrence: BR)
  Receive Date: 20200323
  Receipt Date: 20200415
  Transmission Date: 20200713
  Serious: Yes (Other)
  Sender: FDA-Public Use
  Company Number: BR-SHIRE-BR202009476

PATIENT

DRUGS (1)
  1. VENVANSE [Suspect]
     Active Substance: LISDEXAMFETAMINE DIMESYLATE
     Indication: PRODUCT USED FOR UNKNOWN INDICATION
     Dosage: 70 MILLIGRAM
     Route: 065

REACTIONS (6)
  - Malaise [Unknown]
  - Asthenia [Unknown]
  - Depression [Unknown]
  - Coronavirus infection [Unknown]
  - Memory impairment [Unknown]
  - Product label issue [Unknown]
